FAERS Safety Report 6468316-5 (Version None)
Quarter: 2009Q4

REPORT INFORMATION
  Report Type: 
  Country: None (occurrence: None)
  Receive Date: 20091203
  Receipt Date: 20090311
  Transmission Date: 20100525
  Serious: No
  Sender: FDA-Public Use
  Company Number: US-AMGEN-KDL320780

PATIENT
  Sex: Female

DRUGS (1)
  1. ENBREL [Suspect]
     Indication: RHEUMATOID ARTHRITIS
     Route: 058
     Dates: start: 19980101

REACTIONS (7)
  - ASTHMA [None]
  - BLOOD CHOLESTEROL INCREASED [None]
  - LACERATION [None]
  - NASOPHARYNGITIS [None]
  - RHEUMATOID ARTHRITIS [None]
  - TYPE 2 DIABETES MELLITUS [None]
  - WRIST FRACTURE [None]
